FAERS Safety Report 5744472-9 (Version None)
Quarter: 2008Q2

REPORT INFORMATION
  Report Type: 
  Country: None (occurrence: None)
  Receive Date: 20080520
  Receipt Date: 20080514
  Transmission Date: 20081010
  Serious: Yes (Hospitalization)
  Sender: FDA-Public Use
  Company Number: IT-SANOFI-SYNTHELABO-A06200800185

PATIENT
  Sex: Male

DRUGS (3)
  1. CALFOLEX [Concomitant]
     Indication: COLON CANCER
     Route: 042
     Dates: start: 20080227, end: 20080227
  2. ELOXATIN [Suspect]
     Indication: COLON CANCER
     Route: 042
     Dates: start: 20080227, end: 20080227
  3. FLUOROURACILE TEVA [Concomitant]
     Indication: COLON CANCER
     Route: 042
     Dates: start: 20080227, end: 20080227

REACTIONS (1)
  - ATRIAL FIBRILLATION [None]
